FAERS Safety Report 8988344 (Version 1)
Quarter: 2012Q4

REPORT INFORMATION
  Report Type: Spontaneous
  Country: US (occurrence: None)
  Receive Date: 20121220
  Receipt Date: 20121220
  Transmission Date: 20130627
  Serious: Yes (Death)
  Sender: FDA-Public Use
  Company Number: None

PATIENT
  Age: 39 Year
  Sex: Male

DRUGS (3)
  1. CLOZAPINE [Suspect]
     Indication: SCHIZOAFFECTIVE DISORDER
     Dosage: 100mg qam and 400mg qhs po months
     Route: 048
  2. CLOZAPINE [Suspect]
     Indication: BIPOLAR DISORDER
     Dosage: 100mg qam and 400mg qhs po months
     Route: 048
  3. OLANZAPINE [Suspect]
     Dosage: 10mg qam and 40mg qhs months po
     Route: 048

REACTIONS (3)
  - Toxicity to various agents [None]
  - Drug interaction [None]
  - Overdose [None]
